FAERS Safety Report 8355368-0 (Version None)
Quarter: 2012Q2

REPORT INFORMATION
  Report Type: 
  Country: None (occurrence: None)
  Receive Date: 20120511
  Receipt Date: 20120502
  Transmission Date: 20120825
  Serious: Yes (Congenital Anomaly, Other)
  Sender: FDA-Public Use
  Company Number: DE-SANOFI-AVENTIS-2012SA031160

PATIENT
  Age: 0 Day
  Sex: Male
  Weight: 2.34 kg

DRUGS (9)
  1. OMEPRAZOLE [Concomitant]
     Indication: GASTRITIS PROPHYLAXIS
     Dosage: 20 [MG/D ]
     Route: 064
  2. ANTACIDS [Concomitant]
     Indication: GASTRITIS PROPHYLAXIS
     Route: 064
     Dates: end: 20100601
  3. HALDOL [Concomitant]
     Indication: DEPRESSION
     Dosage: 1 [MG/D ]/ 2X5 DROPS PER DAY
     Route: 064
     Dates: end: 20100218
  4. MORPHINE [Suspect]
     Indication: PAIN
     Dosage: SLOW DOSAGE INCREASE FROM 40 TO 3OO MG/D MAX SINCE 20TH GW
     Route: 064
     Dates: start: 20091013, end: 20100613
  5. MELPERONE [Suspect]
     Indication: DEPRESSION
     Dosage: 3X1 TBL./D; DOSAGE UNKNOWN
     Route: 064
     Dates: end: 20100218
  6. MEPERIDINE HCL [Suspect]
     Indication: PAIN
     Dosage: UP TO 9 TIMES PER DAY (MAX), ONLY IF NEEDED
     Route: 064
     Dates: start: 20091013
  7. HYDROXYUREA [Suspect]
     Indication: SICKLE CELL ANAEMIA
     Dosage: VARYING DOSES UP TO MAX. 1000 MG/DAY
     Route: 064
     Dates: start: 20091013, end: 20100218
  8. ANTIDEPRESSANTS [Suspect]
     Indication: DEPRESSION
     Route: 064
     Dates: end: 20100218
  9. FOLIC ACID [Concomitant]
     Indication: VITAMIN SUPPLEMENTATION
     Route: 064
     Dates: end: 20100601

REACTIONS (4)
  - CONGENITAL CHOROID PLEXUS CYST [None]
  - DRUG WITHDRAWAL SYNDROME NEONATAL [None]
  - FOETAL EXPOSURE TIMING UNSPECIFIED [None]
  - OESOPHAGEAL ATRESIA [None]
